FAERS Safety Report 7942072-3 (Version None)
Quarter: 2011Q4

REPORT INFORMATION
  Report Type: 
  Country: None (occurrence: None)
  Receive Date: 20111128
  Receipt Date: 20111118
  Transmission Date: 20120403
  Serious: Yes (Other)
  Sender: FDA-Public Use
  Company Number: US-PURDUE-USA-2011-0078266

PATIENT
  Sex: Female

DRUGS (1)
  1. OXYCONTIN [Suspect]
     Indication: PRODUCT USED FOR UNKNOWN INDICATION
     Dosage: 30 MG, Q8H PRN
     Route: 048

REACTIONS (4)
  - FOOT OPERATION [None]
  - BLADDER PROLAPSE [None]
  - BASEDOW'S DISEASE [None]
  - DRUG TOLERANCE [None]
